FAERS Safety Report 7945353-2 (Version None)
Quarter: 2011Q4

REPORT INFORMATION
  Report Type: 
  Country: None (occurrence: None)
  Receive Date: 20111129
  Receipt Date: 20110415
  Transmission Date: 20120403
  Serious: No
  Sender: FDA-Public Use
  Company Number: US-GLAXOSMITHKLINE-A0923190A

PATIENT
  Age: 42 Year
  Sex: Male

DRUGS (1)
  1. WELLBUTRIN SR [Suspect]
     Indication: DEPRESSION
     Dosage: 100MG PER DAY
     Route: 048
     Dates: start: 20110401

REACTIONS (2)
  - ABDOMINAL DISCOMFORT [None]
  - MUSCULOSKELETAL PAIN [None]
